FAERS Safety Report 6558755-6 (Version None)
Quarter: 2010Q1

REPORT INFORMATION
  Report Type: 
  Country: None (occurrence: None)
  Receive Date: 20100129
  Receipt Date: 20100120
  Transmission Date: 20100710
  Serious: Yes (Hospitalization)
  Sender: FDA-Public Use
  Company Number: US-ABBOTT-10P-163-0620712-00

PATIENT
  Sex: Female
  Weight: 79.904 kg

DRUGS (4)
  1. HUMIRA [Suspect]
     Indication: PSORIATIC ARTHROPATHY
     Dates: start: 20080101, end: 20091101
  2. HUMIRA [Suspect]
     Indication: PSORIASIS
     Dates: start: 20091201
  3. LISINOPRIL [Concomitant]
     Indication: HYPERTENSION
     Dates: start: 20080101
  4. LISINOPRIL [Concomitant]

REACTIONS (8)
  - ARTHRALGIA [None]
  - ASTHENIA [None]
  - CERVICAL SPINAL STENOSIS [None]
  - DYSPHONIA [None]
  - HYPOAESTHESIA [None]
  - JOINT RANGE OF MOTION DECREASED [None]
  - NECK PAIN [None]
  - PARAESTHESIA [None]
